FAERS Safety Report 4531981-3 (Version None)
Quarter: 2004Q4

REPORT INFORMATION
  Report Type: 
  Country: None (occurrence: None)
  Receive Date: 20041217
  Receipt Date: 20041201
  Transmission Date: 20050328
  Serious: Yes (Hospitalization, Other)
  Sender: FDA-Public Use
  Company Number: 2004-DE-06156BY

PATIENT
  Sex: Male

DRUGS (5)
  1. KINZALKOMB (MICARDIS HCT) [Suspect]
     Dosage: PO
     Route: 048
  2. SORTIS (NR) [Concomitant]
  3. AMLODIPIN (NR) [Concomitant]
  4. ASS PROTECT (NR) [Concomitant]
  5. ISCOVER (CLOPIDOGREL SULFATE) (NR) [Concomitant]

REACTIONS (4)
  - CIRCULATORY COLLAPSE [None]
  - CONVULSION [None]
  - FEELING ABNORMAL [None]
  - URTICARIA GENERALISED [None]
